FAERS Safety Report 20012799 (Version 1)
Quarter: 2021Q4

REPORT INFORMATION
  Report Type: Spontaneous
  Country: US (occurrence: US)
  Receive Date: 20211029
  Receipt Date: 20211029
  Transmission Date: 20220303
  Serious: No
  Sender: FDA-Public Use
  Company Number: US-KARYOPHARM-2021KPT001274

PATIENT

DRUGS (1)
  1. XPOVIO [Suspect]
     Active Substance: SELINEXOR
     Indication: Renal cancer
     Dosage: 40 MG, WEEKLY
     Route: 048
     Dates: start: 20210914

REACTIONS (5)
  - Blood bilirubin increased [Unknown]
  - Abdominal pain upper [Unknown]
  - Vomiting [Unknown]
  - Fatigue [Unknown]
  - Off label use [Unknown]

NARRATIVE: CASE EVENT DATE: 20210101
